FAERS Safety Report 7916954-2 (Version None)
Quarter: 2011Q4

REPORT INFORMATION
  Report Type: 
  Country: None (occurrence: None)
  Receive Date: 20111116
  Receipt Date: 20111114
  Transmission Date: 20120403
  Serious: Yes (Death, Other)
  Sender: FDA-Public Use
  Company Number: JP-BAYER-2011-007654

PATIENT
  Age: 61 Year
  Sex: Male

DRUGS (6)
  1. NEXAVAR [Suspect]
     Indication: HEPATIC NEOPLASM MALIGNANT
     Dosage: 200 MG, BID
     Route: 048
     Dates: start: 20100427, end: 20100429
  2. NEXAVAR [Suspect]
     Dosage: 200 MG, QD
     Route: 048
     Dates: start: 20101005, end: 20101111
  3. NEXAVAR [Suspect]
     Dosage: 200 MG, QD
     Route: 048
     Dates: start: 20100430, end: 20100906
  4. NEXAVAR [Suspect]
     Dosage: 400 MG, QD
     Route: 048
     Dates: start: 20100907, end: 20101004
  5. NEXAVAR [Suspect]
     Dosage: 200 MG, QD
     Route: 048
     Dates: start: 20110726, end: 20110809
  6. NEXAVAR [Suspect]
     Dosage: 400 MG, QD
     Route: 048
     Dates: start: 20101112, end: 20110725

REACTIONS (12)
  - CEREBELLAR HAEMORRHAGE [None]
  - HYPERTENSION [None]
  - HEPATIC NEOPLASM MALIGNANT [None]
  - BLOOD ALBUMIN DECREASED [None]
  - HAEMOGLOBIN DECREASED [None]
  - PALMAR-PLANTAR ERYTHRODYSAESTHESIA SYNDROME [None]
  - ACCOMMODATION DISORDER [None]
  - DECREASED APPETITE [None]
  - CONSTIPATION [None]
  - INSOMNIA [None]
  - DIZZINESS [None]
  - GASTRIC ULCER [None]
